FAERS Safety Report 5475103-3 (Version None)
Quarter: 2007Q4

REPORT INFORMATION
  Report Type: 
  Country: None (occurrence: None)
  Receive Date: 20071002
  Receipt Date: 20070925
  Transmission Date: 20080405
  Serious: Yes (Hospitalization, Other)
  Sender: FDA-Public Use
  Company Number: US-PFIZER INC-2007079603

PATIENT
  Sex: Female
  Weight: 81.2 kg

DRUGS (2)
  1. BEXTRA [Suspect]
     Indication: ARTHRALGIA
  2. VIOXX [Suspect]
     Indication: ARTHRALGIA
     Dates: start: 20020101

REACTIONS (1)
  - CEREBROVASCULAR ACCIDENT [None]
